FAERS Safety Report 6209639-4 (Version None)
Quarter: 2009Q2

REPORT INFORMATION
  Report Type: 
  Country: None (occurrence: None)
  Receive Date: 20090601
  Receipt Date: 20090527
  Transmission Date: 20091009
  Serious: Yes (Other)
  Sender: FDA-Public Use
  Company Number: US-SOLVAY-00209002141

PATIENT
  Age: 24764 Day
  Sex: Male
  Weight: 81.81 kg

DRUGS (1)
  1. ANDROGEL [Suspect]
     Indication: BLOOD TESTOSTERONE DECREASED
     Dosage: DAILY DOSE: 5 GRAM(S)
     Route: 062
     Dates: start: 20090410

REACTIONS (2)
  - CHEST DISCOMFORT [None]
  - CORONARY ARTERY DISEASE [None]
